FAERS Safety Report 9102772 (Version 1)
Quarter: 2013Q1

REPORT INFORMATION
  Report Type: Spontaneous
  Country: US (occurrence: US)
  Receive Date: 20130219
  Receipt Date: 20130219
  Transmission Date: 20140127
  Serious: Yes (Other)
  Sender: FDA-Public Use
  Company Number: US-JNJFOC-20111109175

PATIENT
  Sex: Male

DRUGS (1)
  1. LISTERINE TOTAL CARE [Suspect]
     Indication: GINGIVAL DISORDER
     Route: 065
     Dates: start: 2009

REACTIONS (3)
  - Tooth injury [Not Recovered/Not Resolved]
  - Teeth brittle [Not Recovered/Not Resolved]
  - Product quality issue [Unknown]
